FAERS Safety Report 9822837 (Version 1)
Quarter: 2014Q1

REPORT INFORMATION
  Report Type: Report from Study
  Country: DE (occurrence: DE)
  Receive Date: 20140116
  Receipt Date: 20140116
  Transmission Date: 20141002
  Serious: Yes (Other)
  Sender: FDA-Public Use
  Company Number: DE-BAYER-2014-005675

PATIENT
  Sex: Female

DRUGS (1)
  1. BEATFERON [Suspect]
     Indication: MULTIPLE SCLEROSIS
     Dosage: UNK
     Dates: start: 201312

REACTIONS (3)
  - Motor dysfunction [None]
  - Injection site inflammation [None]
  - Wrong technique in drug usage process [None]
